FAERS Safety Report 24776661 (Version 1)
Quarter: 2024Q4

REPORT INFORMATION
  Report Type: Spontaneous
  Country: PT (occurrence: PT)
  Receive Date: 20241226
  Receipt Date: 20241226
  Transmission Date: 20250114
  Serious: Yes (Other)
  Sender: AZURITY PHARMACEUTICALS
  Company Number: PT-AZURITY PHARMACEUTICALS, INC.-AZR202412-001339

PATIENT
  Age: 54 Year
  Sex: Male

DRUGS (1)
  1. METHOTREXATE [Suspect]
     Active Substance: METHOTREXATE
     Indication: Psoriasis
     Dosage: UNK, QD
     Route: 065

REACTIONS (10)
  - Cardiac failure [Recovering/Resolving]
  - Pneumonitis [Recovering/Resolving]
  - Toxicity to various agents [Recovering/Resolving]
  - Pneumonia [Recovering/Resolving]
  - Pancytopenia [Recovering/Resolving]
  - Renal failure [Recovering/Resolving]
  - Hypotension [Recovering/Resolving]
  - Respiratory failure [Not Recovered/Not Resolved]
  - Septic shock [Unknown]
  - Incorrect dose administered [Unknown]
